FAERS Safety Report 4446290-0 (Version None)
Quarter: 2004Q3

REPORT INFORMATION
  Report Type: 
  Country: None (occurrence: None)
  Receive Date: 20040903
  Receipt Date: 20040831
  Transmission Date: 20050211
  Serious: Yes (Death)
  Sender: FDA-Public Use
  Company Number: USA-2004-0016640

PATIENT
  Age: 44 Year
  Sex: Male
  Weight: 81.6 kg

DRUGS (5)
  1. OXYCONTIN [Suspect]
  2. DIAZEPAM [Suspect]
  3. TEMAZEPAM [Suspect]
  4. DIPHENHYDRAMINE HCL [Suspect]
  5. ETHANOL(ETHANOL) [Suspect]

REACTIONS (5)
  - DRUG TOXICITY [None]
  - HEPATIC STEATOSIS [None]
  - PULMONARY CONGESTION [None]
  - PULMONARY OEDEMA [None]
  - RENAL DISORDER [None]
